FAERS Safety Report 9466925 (Version 1)
Quarter: 2013Q3

REPORT INFORMATION
  Report Type: Report from Study
  Country: US (occurrence: US)
  Receive Date: 20130820
  Receipt Date: 20130820
  Transmission Date: 20140515
  Serious: Yes (Hospitalization)
  Sender: FDA-Public Use
  Company Number: US-GLAXOSMITHKLINE-A1038259A

PATIENT
  Age: 67 Year
  Sex: Male
  Weight: 112 kg

DRUGS (2)
  1. OFATUMUMAB [Suspect]
     Indication: B-CELL LYMPHOMA
     Dosage: 300MG CYCLIC
     Route: 042
     Dates: start: 20120717
  2. BENDAMUSTINE [Suspect]
     Indication: B-CELL LYMPHOMA
     Dosage: 90MGM2 CYCLIC
     Route: 042
     Dates: start: 20120717

REACTIONS (1)
  - Cholecystitis [Recovered/Resolved]
